FAERS Safety Report 7307285-2 (Version None)
Quarter: 2011Q1

REPORT INFORMATION
  Report Type: 
  Country: None (occurrence: None)
  Receive Date: 20110120
  Receipt Date: 20100317
  Transmission Date: 20110831
  Serious: Yes (Hospitalization, Other)
  Sender: FDA-Public Use
  Company Number: WAES 1003USA02732

PATIENT
  Age: 79 Year
  Sex: Male
  Weight: 83.9154 kg

DRUGS (10)
  1. FENOFIBRATE [Concomitant]
  2. FLOMAX [Concomitant]
  3. MOBIC [Concomitant]
  4. OXYCONTIN [Concomitant]
  5. GLYBURIDE [Concomitant]
  6. VALSARTAN AND HYDROCHLOROTHIAZIDE [Concomitant]
  7. METFORMIN [Concomitant]
  8. INVANZ [Suspect]
     Indication: BACTEROIDES INFECTION
     Dosage: 1 GM/DAILY/IV
     Route: 042
     Dates: start: 20100309, end: 20100315
  9. INVANZ [Suspect]
     Indication: OSTEOMYELITIS
     Dosage: 1 GM/DAILY/IV
     Route: 042
     Dates: start: 20100309, end: 20100315
  10. LIPITOR [Concomitant]

REACTIONS (5)
  - AGITATION [None]
  - CONFUSIONAL STATE [None]
  - ASTHENIA [None]
  - AGGRESSION [None]
  - HALLUCINATION [None]
